FAERS Safety Report 25183489 (Version 1)
Quarter: 2025Q2

REPORT INFORMATION
  Report Type: Spontaneous
  Country: US (occurrence: None)
  Receive Date: 20250409
  Receipt Date: 20250409
  Transmission Date: 20250717
  Serious: No
  Sender: FDA-CTU
  Company Number: None

PATIENT
  Sex: Female

DRUGS (7)
  1. SIMLANDI [Suspect]
     Active Substance: ADALIMUMAB-RYVK
     Indication: Psoriatic arthropathy
     Route: 058
     Dates: start: 20250116, end: 202504
  2. CENTRUM SILV TAB 50+WOMEN [Concomitant]
  3. HUMIRA [Concomitant]
     Active Substance: ADALIMUMAB
  4. PROBIOTIC CAP [Concomitant]
  5. SUDAFD SINUS TAB 30MG [Concomitant]
  6. SUMATRIPTAN TAB 50MG [Concomitant]
  7. ZYRTEC ALLGYTAB 10MG [Concomitant]

REACTIONS (1)
  - Death [None]
